FAERS Safety Report 8496686-5 (Version None)
Quarter: 2012Q3

REPORT INFORMATION
  Report Type: 
  Country: None (occurrence: None)
  Receive Date: 20120709
  Receipt Date: 20120629
  Transmission Date: 20120928
  Serious: Yes (Hospitalization, Other)
  Sender: FDA-Public Use
  Company Number: IN-ABBOTT-11P-078-0834565-00

PATIENT
  Age: 46 Year
  Sex: Female
  Weight: 39 kg

DRUGS (31)
  1. ATAZANAVIR [Concomitant]
     Indication: HIV INFECTION
     Route: 048
     Dates: start: 20080922, end: 20110719
  2. ACETAMINOPHEN [Concomitant]
     Indication: HEADACHE
     Dosage: TABLET
     Dates: start: 20110909, end: 20110909
  3. DIDANOSINE [Concomitant]
     Indication: HIV INFECTION
     Dates: start: 20120320
  4. OTHER BLOOD PRODUCTS [Concomitant]
     Indication: ANAEMIA
     Dates: start: 20120209, end: 20120209
  5. RITONAVIR [Suspect]
     Dates: start: 20100811
  6. EFAVIRENZ [Concomitant]
     Indication: HIV INFECTION
     Route: 048
     Dates: start: 20070309, end: 20080921
  7. TENOFOVIR DF + EMTRICITABINE [Concomitant]
     Indication: HIV INFECTION
     Dosage: 200/300 MILLIGRAM
     Route: 048
     Dates: start: 20100811, end: 20110719
  8. LAMIVUDINE + ADEFOVIR DIPIVOXIL [Concomitant]
     Dates: start: 20120208, end: 20120211
  9. ATAZANAVIR [Concomitant]
     Dates: start: 20120224
  10. LAMIVUDINE + ZIDOVUDINE [Concomitant]
     Route: 048
     Dates: start: 20080922, end: 20100802
  11. PYRIDOXINE W/THIAMINE [Concomitant]
     Indication: NEUROPATHY PERIPHERAL
  12. LAMIVUDINE + ZIDOVUDINE [Concomitant]
     Indication: HIV INFECTION
     Dosage: 150/300 MG
     Route: 048
     Dates: start: 20070309, end: 20100802
  13. TRIMETHOPRIM 160 MG, SULPHAMETHAXAZOLE 800 MG [Concomitant]
     Indication: ROUTINE HEALTH MAINTENANCE
     Dosage: TAB
     Dates: start: 20101129
  14. FERROUS FUMARATE [Concomitant]
     Indication: PRODUCT USED FOR UNKNOWN INDICATION
     Dates: start: 20101129
  15. LAMIVUDINE + ADEFOVIR DIPIVOXIL [Concomitant]
     Indication: HIV INFECTION
     Dates: start: 20111230, end: 20120208
  16. LAMIVUDINE + ADEFOVIR DIPIVOXIL [Concomitant]
     Dates: start: 20120211
  17. AMOROLFINE HYDROCHLORIDE [Concomitant]
     Indication: PRODUCT USED FOR UNKNOWN INDICATION
     Dates: start: 20110520
  18. VITAMIN B-12 [Concomitant]
     Indication: PRODUCT USED FOR UNKNOWN INDICATION
     Dates: start: 20101129
  19. RITONAVIR [Suspect]
     Indication: HIV INFECTION
     Route: 048
     Dates: start: 20080922, end: 20100325
  20. TENOFOVIR DISOPROXIL FUMARATE [Concomitant]
     Indication: HIV INFECTION
     Route: 048
     Dates: start: 20080922, end: 20100802
  21. VITAMIN B12 15 MCG, FERROUS FUMARATE 0.3G, FOLIC ACID 1.5 MG [Concomitant]
     Indication: ROUTINE HEALTH MAINTENANCE
     Dosage: CAP
     Dates: start: 20101129
  22. ACETAMINOPHEN [Concomitant]
     Indication: ARTHRALGIA
     Dates: start: 20110923, end: 20110929
  23. TERBUTALINE EXPECTORANT [Concomitant]
     Indication: COUGH
     Dates: start: 20120208
  24. OTHER BLOOD PRODUCTS [Concomitant]
     Dates: start: 20120210, end: 20120211
  25. FOLIC ACID [Concomitant]
     Indication: PRODUCT USED FOR UNKNOWN INDICATION
     Dates: start: 20101129
  26. PYRIDOXINE W/THIAMINE [Concomitant]
     Indication: PROPHYLAXIS
     Dates: start: 20120212, end: 20120212
  27. OXETHAZINE 10 MG, AI(OH3) 291 MG, MGSOL 98 MG [Concomitant]
     Indication: PROPHYLAXIS OF NAUSEA AND VOMITING
     Route: 048
     Dates: start: 20120210
  28. OXETHAZINE 10 MG, AI(OH3) 291 MG, MGSOL 98 MG [Concomitant]
  29. RITONAVIR [Suspect]
     Route: 048
     Dates: start: 20100326, end: 20100802
  30. HYDROXYZINE HCL [Concomitant]
     Indication: PRODUCT USED FOR UNKNOWN INDICATION
     Dates: start: 20110520
  31. ACETAMINOPHEN [Concomitant]
     Indication: PYREXIA
     Dates: start: 20111007

REACTIONS (7)
  - PULMONARY TUBERCULOSIS [None]
  - VIROLOGIC FAILURE [None]
  - DRUG HYPERSENSITIVITY [None]
  - LOWER RESPIRATORY TRACT INFECTION [None]
  - EXTRAPULMONARY TUBERCULOSIS [None]
  - ANAEMIA [None]
  - HIV PERIPHERAL NEUROPATHY [None]
